FAERS Safety Report 4696395-4 (Version None)
Quarter: 2005Q2

REPORT INFORMATION
  Report Type: 
  Country: None (occurrence: None)
  Receive Date: 20050615
  Receipt Date: 20050317
  Transmission Date: 20051028
  Serious: Yes (Hospitalization)
  Sender: FDA-Public Use
  Company Number: 2005PL000043

PATIENT
  Age: 57 Year
  Sex: Female
  Weight: 83.9154 kg

DRUGS (1)
  1. IMURAN [Suspect]
     Indication: CROHN'S DISEASE
     Dosage: 100 MG;QD;PO
     Route: 048
     Dates: end: 20050317

REACTIONS (1)
  - PANCYTOPENIA [None]
